FAERS Safety Report 9579976 (Version 1)
Quarter: 2013Q3

REPORT INFORMATION
  Report Type: Spontaneous
  Country: US (occurrence: None)
  Receive Date: 20130930
  Receipt Date: 20130930
  Transmission Date: 20140515
  Serious: No
  Sender: FDA-Public Use
  Company Number: None

PATIENT
  Age: 10 Month
  Sex: Female
  Weight: 8.16 kg

DRUGS (2)
  1. BADGER BABY SPF 30 SUNSCREEN [Suspect]
     Indication: SUNBURN
     Dates: start: 20130814, end: 20130817
  2. BADGER BABY SPF 30 SUNSCREEN [Suspect]
     Indication: PROPHYLAXIS
     Dates: start: 20130814, end: 20130817

REACTIONS (1)
  - Rash [None]
